FAERS Safety Report 9309802 (Version 1)
Quarter: 2013Q2

REPORT INFORMATION
  Report Type: Spontaneous
  Country: US (occurrence: US)
  Receive Date: 20130525
  Receipt Date: 20130525
  Transmission Date: 20140414
  Serious: No
  Sender: FDA-Public Use
  Company Number: US-BRISTOL-MYERS SQUIBB COMPANY-18587576

PATIENT
  Age: 66 Year
  Sex: Male
  Weight: 92.97 kg

DRUGS (4)
  1. BYDUREON 2MG VIAL + SYRINGE [Suspect]
     Indication: INSULIN-REQUIRING TYPE 2 DIABETES MELLITUS
     Route: 058
  2. METFORMIN [Concomitant]
     Indication: INSULIN-REQUIRING TYPE 2 DIABETES MELLITUS
     Route: 048
  3. GLYBURIDE [Concomitant]
     Indication: INSULIN-REQUIRING TYPE 2 DIABETES MELLITUS
     Route: 048
  4. LEVEMIR [Concomitant]
     Indication: INSULIN-REQUIRING TYPE 2 DIABETES MELLITUS
     Route: 058

REACTIONS (4)
  - Injection site nodule [Recovering/Resolving]
  - Injection site pruritus [Recovering/Resolving]
  - Drug dose omission [Recovered/Resolved]
  - Off label use [Not Recovered/Not Resolved]
